FAERS Safety Report 24604908 (Version 2)
Quarter: 2024Q4

REPORT INFORMATION
  Report Type: Report from Study
  Country: GB (occurrence: GB)
  Receive Date: 20241111
  Receipt Date: 20241227
  Transmission Date: 20250115
  Serious: Yes (Other)
  Sender: BAYER HEALTHCARE PHARMACEUTICALS INC.
  Company Number: GB-BAYER-2024A069765

PATIENT
  Age: 67 Year
  Sex: Male

DRUGS (2)
  1. NUBEQA [Suspect]
     Active Substance: DAROLUTAMIDE
     Indication: Hormone-dependent prostate cancer
     Dosage: 600 MG, BID
     Dates: start: 20230404
  2. COVID-19 VACCINE NOS [Suspect]
     Active Substance: COVID-19 VACCINE
     Indication: COVID-19
     Dosage: UNK
     Dates: start: 20240607

REACTIONS (11)
  - Lung disorder [Not Recovered/Not Resolved]
  - Atrial fibrillation [Not Recovered/Not Resolved]
  - Mitral valve incompetence [Not Recovered/Not Resolved]
  - Prostatic specific antigen increased [None]
  - Blood creatinine abnormal [Recovering/Resolving]
  - Ejection fraction decreased [None]
  - Blood urea abnormal [Recovering/Resolving]
  - Dehydration [None]
  - Pain in extremity [None]
  - Malaise [None]
  - Hypertension [Recovering/Resolving]

NARRATIVE: CASE EVENT DATE: 20240501
